FAERS Safety Report 5601455-7 (Version None)
Quarter: 2008Q1

REPORT INFORMATION
  Report Type: 
  Country: None (occurrence: None)
  Receive Date: 20080124
  Receipt Date: 20080117
  Transmission Date: 20080703
  Serious: Yes (Hospitalization)
  Sender: FDA-Public Use
  Company Number: CH-ASTRAZENECA-2008PK00138

PATIENT
  Age: 63 Year
  Sex: Male
  Weight: 74 kg

DRUGS (7)
  1. ATACAND [Suspect]
     Route: 048
     Dates: end: 20071204
  2. SORTIS [Suspect]
     Route: 048
     Dates: end: 20071117
  3. CITALOPRAM [Concomitant]
     Dates: end: 20071122
  4. PRADIF [Concomitant]
     Dates: end: 20071130
  5. ACIDUM FOLICUM [Concomitant]
     Dates: end: 20071130
  6. MARCUMAR [Concomitant]
  7. GLUCOVANCE [Concomitant]
     Dosage: 2 TABLETES PER DAY
     Route: 048
     Dates: end: 20071117

REACTIONS (2)
  - HEPATITIS [None]
  - RHABDOMYOLYSIS [None]
